FAERS Safety Report 8209267-5 (Version None)
Quarter: 2012Q1

REPORT INFORMATION
  Report Type: 
  Country: None (occurrence: None)
  Receive Date: 20120314
  Receipt Date: 20120305
  Transmission Date: 20120608
  Serious: Yes (Hospitalization)
  Sender: FDA-Public Use
  Company Number: US-BAYER-201036506NA

PATIENT
  Age: 35 Year
  Sex: Female
  Weight: 88.435 kg

DRUGS (8)
  1. DROSPIRENONE AND ETHINYL ESTRADIOL [Suspect]
     Indication: CONTRACEPTION
     Dosage: UNK
     Route: 048
     Dates: start: 20080906, end: 20080927
  2. ATENOLOL [Concomitant]
     Dosage: 50 MG, QD
     Route: 048
  3. BYETTA [Concomitant]
     Route: 048
  4. METFORMIN HCL [Concomitant]
     Dosage: 1000 MG, QD
     Route: 048
  5. LIPITOR [Concomitant]
     Route: 048
  6. YASMIN [Suspect]
     Indication: CONTRACEPTION
     Dosage: UNK
     Dates: start: 20070901, end: 20071201
  7. IBUPROFEN [Concomitant]
  8. LISINOPRIL [Concomitant]
     Dosage: 20 MG, QD
     Route: 048

REACTIONS (1)
  - DEEP VEIN THROMBOSIS [None]
